FAERS Safety Report 6008051-0 (Version None)
Quarter: 2008Q4

REPORT INFORMATION
  Report Type: 
  Country: None (occurrence: None)
  Receive Date: 20081217
  Receipt Date: 20080807
  Transmission Date: 20090506
  Serious: No
  Sender: FDA-Public Use
  Company Number: US-ASTRAZENECA-2008UW16248

PATIENT
  Age: 79 Year
  Sex: Female
  Weight: 63.5 kg

DRUGS (4)
  1. CRESTOR [Suspect]
     Route: 048
     Dates: start: 20080707
  2. TAGAMET [Concomitant]
  3. XANAX [Concomitant]
  4. BLOOD PRESSURE [Concomitant]
     Indication: BLOOD PRESSURE MANAGEMENT

REACTIONS (1)
  - ECCHYMOSIS [None]
